FAERS Safety Report 5700566-5 (Version None)
Quarter: 2008Q2

REPORT INFORMATION
  Report Type: 
  Country: None (occurrence: None)
  Receive Date: 20080410
  Receipt Date: 20080401
  Transmission Date: 20081010
  Serious: Yes (Hospitalization)
  Sender: FDA-Public Use
  Company Number: US-JNJFOC-20080400922

PATIENT
  Age: 2 Year
  Sex: Female
  Weight: 10.89 kg

DRUGS (2)
  1. TOPAMAX [Suspect]
     Indication: CONVULSION
     Dosage: 30 MG IN AM, 60 MG IN PM
     Route: 048
  2. KEPPRA [Concomitant]
     Indication: CONVULSION
     Route: 048

REACTIONS (2)
  - ABNORMAL BEHAVIOUR [None]
  - DYSSTASIA [None]
